FAERS Safety Report 15842804 (Version 1)
Quarter: 2019Q1

REPORT INFORMATION
  Report Type: Spontaneous
  Country: US (occurrence: US)
  Receive Date: 20190118
  Receipt Date: 20190118
  Transmission Date: 20190417
  Serious: Yes (Other)
  Sender: FDA-Public Use
  Company Number: None

PATIENT
  Sex: Male
  Weight: 105.7 kg

DRUGS (1)
  1. RITUXAN [Suspect]
     Active Substance: RITUXIMAB
     Indication: IMMUNE THROMBOCYTOPENIC PURPURA
     Dosage: ?          OTHER FREQUENCY:WEEKLY;?
     Route: 041
     Dates: start: 20181228, end: 20181228

REACTIONS (5)
  - Ear pruritus [None]
  - Flushing [None]
  - Infusion related reaction [None]
  - Drug hypersensitivity [None]
  - Pruritus [None]

NARRATIVE: CASE EVENT DATE: 20181228
